FAERS Safety Report 6349324-1 (Version None)
Quarter: 2009Q3

REPORT INFORMATION
  Report Type: 
  Country: None (occurrence: None)
  Receive Date: 20090911
  Receipt Date: 20090903
  Transmission Date: 20100115
  Serious: Yes (Hospitalization)
  Sender: FDA-Public Use
  Company Number: B0592514A

PATIENT
  Age: 9 Year
  Sex: Female

DRUGS (10)
  1. LAMIVUDINE [Suspect]
     Indication: HIV INFECTION
  2. STAVUDINE [Suspect]
     Indication: HIV INFECTION
  3. RITONAVIR [Suspect]
     Indication: HIV INFECTION
  4. LOPINAVIR [Suspect]
  5. FLUOXETINE [Suspect]
  6. ISONIAZID [Suspect]
     Indication: PULMONARY TUBERCULOSIS
  7. RIFAMPICIN [Concomitant]
  8. PYRAZINAMIDE [Concomitant]
  9. ETHIONAMIDE [Concomitant]
  10. HALOPERIDOL [Concomitant]
     Dosage: .75MG PER DAY

REACTIONS (22)
  - AGITATION [None]
  - ANHEDONIA [None]
  - APATHY [None]
  - BLUNTED AFFECT [None]
  - CATATONIA [None]
  - CONSCIOUSNESS FLUCTUATING [None]
  - DECREASED APPETITE [None]
  - DELIRIUM [None]
  - DISINHIBITION [None]
  - DISTURBANCE IN ATTENTION [None]
  - DRUG INTERACTION [None]
  - EUPHORIC MOOD [None]
  - FEAR [None]
  - FEELING OF DESPAIR [None]
  - HALLUCINATION, VISUAL [None]
  - IMMUNE RECONSTITUTION SYNDROME [None]
  - MENTAL IMPAIRMENT [None]
  - PERSECUTORY DELUSION [None]
  - PSYCHOMOTOR RETARDATION [None]
  - SEROTONIN SYNDROME [None]
  - SOMNOLENCE [None]
  - TEARFULNESS [None]
